FAERS Safety Report 25835259 (Version 1)
Quarter: 2025Q3

REPORT INFORMATION
  Report Type: Report from Study
  Country: US (occurrence: US)
  Receive Date: 20250923
  Receipt Date: 20250923
  Transmission Date: 20251021
  Serious: Yes (Death, Other)
  Sender: CHEPLAPHARM
  Company Number: US-CHEPLA-2025011019

PATIENT
  Age: 85 Year

DRUGS (7)
  1. QUETIAPINE [Suspect]
     Active Substance: QUETIAPINE
  2. OLANZAPINE [Suspect]
     Active Substance: OLANZAPINE
     Route: 042
  3. OLANZAPINE [Suspect]
     Active Substance: OLANZAPINE
     Route: 030
  4. HALOPERIDOL [Suspect]
     Active Substance: HALOPERIDOL
  5. LORAZEPAM [Suspect]
     Active Substance: LORAZEPAM
  6. OXYCODONE [Suspect]
     Active Substance: OXYCODONE
  7. MORPHINE [Suspect]
     Active Substance: MORPHINE

REACTIONS (3)
  - Cardiac failure [Fatal]
  - Pulmonary hypertension [Fatal]
  - Off label use [Unknown]
